FAERS Safety Report 5753605-X (Version None)
Quarter: 2008Q2

REPORT INFORMATION
  Report Type: 
  Country: None (occurrence: None)
  Receive Date: 20080530
  Receipt Date: 20080522
  Transmission Date: 20081010
  Serious: Yes (Other)
  Sender: FDA-Public Use
  Company Number: US-JNJFOC-20080505268

PATIENT
  Sex: Male
  Weight: 40.82 kg

DRUGS (5)
  1. DURAGESIC-100 [Suspect]
     Route: 062
  2. DURAGESIC-100 [Suspect]
     Indication: SYSTEMIC LUPUS ERYTHEMATOSUS
     Route: 062
  3. CIPRO [Concomitant]
     Indication: PNEUMONIA
     Route: 048
  4. TOBI [Concomitant]
     Indication: PNEUMONIA
     Route: 055
  5. LEVAQUIN [Concomitant]
     Indication: PNEUMONIA

REACTIONS (4)
  - BALANCE DISORDER [None]
  - NEPHROLITHIASIS [None]
  - SEDATION [None]
  - VISION BLURRED [None]
